FAERS Safety Report 13954153 (Version 1)
Quarter: 2017Q3

REPORT INFORMATION
  Report Type: Spontaneous
  Country: US (occurrence: None)
  Receive Date: 20170911
  Receipt Date: 20170911
  Transmission Date: 20171128
  Serious: No
  Sender: FDA-Public Use
  Company Number: None

PATIENT

DRUGS (1)
  1. XIFAXAN [Suspect]
     Active Substance: RIFAXIMIN

REACTIONS (12)
  - Off label use [None]
  - Dehydration [None]
  - Sepsis [None]
  - Discomfort [None]
  - Tachycardia [None]
  - Leukocytosis [None]
  - Pseudomembranous colitis [None]
  - Systemic inflammatory response syndrome [None]
  - Impaired work ability [None]
  - Diarrhoea haemorrhagic [None]
  - Blood glucose increased [None]
  - Clostridium difficile infection [None]
